FAERS Safety Report 11636107 (Version 1)
Quarter: 2015Q4

REPORT INFORMATION
  Report Type: Spontaneous
  Country: US (occurrence: US)
  Receive Date: 20151016
  Receipt Date: 20151016
  Transmission Date: 20160304
  Serious: No
  Sender: FDA-Public Use
  Company Number: US-WEST-WARD PHARMACEUTICALS CORP.-US-H14001-14-01884

PATIENT
  Age: 74 Year
  Sex: Male

DRUGS (3)
  1. BACLOFEN. [Concomitant]
     Active Substance: BACLOFEN
     Indication: PRODUCT USED FOR UNKNOWN INDICATION
     Route: 048
  2. INFUMORPH [Suspect]
     Active Substance: MORPHINE SULFATE
     Indication: SPINAL CORD INJURY
  3. INFUMORPH [Suspect]
     Active Substance: MORPHINE SULFATE
     Indication: MUSCLE SPASTICITY
     Route: 037
     Dates: start: 1990

REACTIONS (2)
  - Drug withdrawal syndrome [Recovered/Resolved]
  - Underdose [Recovered/Resolved]

NARRATIVE: CASE EVENT DATE: 20141218
